FAERS Safety Report 13075270 (Version 1)
Quarter: 2016Q4

REPORT INFORMATION
  Report Type: Spontaneous
  Country: AU (occurrence: AU)
  Receive Date: 20161230
  Receipt Date: 20161230
  Transmission Date: 20170207
  Serious: Yes (Life-Threatening)
  Sender: FDA-Public Use
  Company Number: AU-AMGEN-AUSSP2016183250

PATIENT
  Age: 93 Year
  Sex: Female

DRUGS (1)
  1. PROLIA [Suspect]
     Active Substance: DENOSUMAB
     Indication: PRODUCT USED FOR UNKNOWN INDICATION
     Dosage: UNK
     Route: 065
     Dates: start: 20161011

REACTIONS (6)
  - Muscle spasms [Recovered/Resolved]
  - Neck pain [Recovered/Resolved]
  - Dizziness [Recovered/Resolved]
  - Blood parathyroid hormone increased [Recovered/Resolved]
  - Hypocalcaemia [Recovered/Resolved]
  - Dyskinesia [Recovered/Resolved]

NARRATIVE: CASE EVENT DATE: 20161030
